FAERS Safety Report 6181803-2 (Version None)
Quarter: 2009Q2

REPORT INFORMATION
  Report Type: 
  Country: None (occurrence: None)
  Receive Date: 20090506
  Receipt Date: 20090427
  Transmission Date: 20091009
  Serious: Yes (Other)
  Sender: FDA-Public Use
  Company Number: PHHY2008CN19523

PATIENT
  Age: 29 Year
  Sex: Female

DRUGS (1)
  1. SEBIVO [Suspect]
     Dosage: UNK
     Route: 048
     Dates: start: 20080820, end: 20080822

REACTIONS (3)
  - ABORTION INDUCED [None]
  - DRUG EXPOSURE DURING PREGNANCY [None]
  - NAUSEA [None]
